FAERS Safety Report 19302831 (Version 2)
Quarter: 2021Q2

REPORT INFORMATION
  Report Type: Spontaneous
  Country: CN (occurrence: CN)
  Receive Date: 20210525
  Receipt Date: 20210528
  Transmission Date: 20210717
  Serious: Yes (Hospitalization, Other)
  Sender: FDA-Public Use
  Company Number: CN-ASTRAZENECA-2021A443562

PATIENT
  Sex: Female

DRUGS (3)
  1. DOCETAXEL. [Concomitant]
     Active Substance: DOCETAXEL
  2. PLATINUM [Concomitant]
     Active Substance: PLATINUM
  3. IMFINZI [Suspect]
     Active Substance: DURVALUMAB
     Route: 042

REACTIONS (6)
  - Peripheral swelling [Recovering/Resolving]
  - Cardiovascular disorder [Unknown]
  - Metastases to lymph nodes [Not Recovered/Not Resolved]
  - Lymphatic disorder [Recovering/Resolving]
  - White blood cell count decreased [Recovering/Resolving]
  - Metastases to bone [Not Recovered/Not Resolved]
